FAERS Safety Report 9345797 (Version 3)
Quarter: 2013Q3

REPORT INFORMATION
  Report Type: Spontaneous
  Country: US (occurrence: US)
  Receive Date: 20130613
  Receipt Date: 20130730
  Transmission Date: 20140515
  Serious: No
  Sender: FDA-Public Use
  Company Number: US-PFIZER INC-2013175014

PATIENT
  Age: 57 Year
  Sex: Male

DRUGS (14)
  1. XALKORI [Suspect]
     Indication: LUNG CARCINOMA CELL TYPE UNSPECIFIED STAGE IV
     Dosage: 250 MG, 2X/DAY
     Route: 048
     Dates: start: 201305
  2. XALKORI [Suspect]
     Dosage: 250 MG, 2X/DAY
     Route: 048
     Dates: start: 20130604
  3. OXYCODONE [Concomitant]
     Dosage: 10 MG, UNK
     Route: 048
  4. PROTONIX [Concomitant]
     Dosage: 40 MG, UNK
     Route: 048
  5. RELAFEN [Concomitant]
     Dosage: 750 MG, UNK
     Route: 048
  6. FENTANYL [Concomitant]
     Dosage: 100 MCG/H DERMAL
  7. ZOFRAN [Concomitant]
     Dosage: 8 MG, ODT, SL
  8. MEGACE [Concomitant]
     Dosage: 40 MG, UNK
     Route: 048
  9. FOLIC ACID [Concomitant]
     Dosage: 1 MG, UNK
     Route: 048
  10. DILAUDID [Concomitant]
     Dosage: 2 MG, UNK
     Route: 048
  11. FLEXERIL [Concomitant]
     Dosage: 10 MG, UNK
     Route: 048
  12. DULCOLAX [Concomitant]
     Dosage: 5 MG, UNK
     Route: 048
  13. MIRALAX [Concomitant]
     Dosage: 17 G, UNK
     Route: 048
  14. METFORMIN [Concomitant]
     Dosage: 1000 MG, UNK
     Route: 048

REACTIONS (12)
  - Pain [Unknown]
  - Malaise [Unknown]
  - Memory impairment [Unknown]
  - Nausea [Not Recovered/Not Resolved]
  - Vomiting [Not Recovered/Not Resolved]
  - Constipation [Not Recovered/Not Resolved]
  - Diarrhoea [Not Recovered/Not Resolved]
  - Dyspnoea [Not Recovered/Not Resolved]
  - Aphonia [Unknown]
  - Disease progression [Unknown]
  - Lung carcinoma cell type unspecified stage IV [Unknown]
  - Abdominal pain upper [Unknown]
